FAERS Safety Report 4337489-2 (Version None)
Quarter: 2004Q2

REPORT INFORMATION
  Report Type: 
  Country: None (occurrence: None)
  Receive Date: 20040412
  Receipt Date: 20040412
  Transmission Date: 20050107
  Serious: Yes (Life-Threatening, Hospitalization)
  Sender: FDA-Public Use
  Company Number: None

PATIENT
  Sex: Male
  Weight: 80.7403 kg

DRUGS (8)
  1. WARFARIN SODIUM [Suspect]
     Indication: DEEP VEIN THROMBOSIS
     Dosage: 2.5 MG DAILY ORAL
     Route: 048
     Dates: start: 20030101, end: 20040309
  2. HYDROCHLOROTHIAZIDE [Concomitant]
  3. LISINOPRIL [Concomitant]
  4. OXYBUTININ [Concomitant]
  5. METOPROLOL TARTRATE [Concomitant]
  6. FELODIPINE SA [Concomitant]
  7. WELLBUTRIN SR [Concomitant]
  8. ACETAMINOPHEN [Concomitant]

REACTIONS (1)
  - HAEMORRHAGIC STROKE [None]
